FAERS Safety Report 8444553-5 (Version None)
Quarter: 2012Q2

REPORT INFORMATION
  Report Type: 
  Country: None (occurrence: None)
  Receive Date: 20120618
  Receipt Date: 20120608
  Transmission Date: 20120825
  Serious: Yes (Hospitalization)
  Sender: FDA-Public Use
  Company Number: US-BAYER-2012-018927

PATIENT
  Age: 20 Year
  Sex: Female
  Weight: 68.027 kg

DRUGS (6)
  1. VICODIN [Concomitant]
  2. IBUPROFEN [Concomitant]
     Indication: PAIN
     Dosage: 800 MG, QID
     Route: 048
     Dates: start: 20090625
  3. HYDROCODONE BITARTRATE + ACETAMINOPHEN [Concomitant]
  4. ACETAMINOPHEN [Concomitant]
     Indication: PAIN
     Dosage: TAKEN MONTHLY
     Route: 048
     Dates: start: 20090625, end: 20090731
  5. BENADRYL [Concomitant]
     Indication: SEASONAL ALLERGY
     Dosage: TAKEN ONSET OF SPRING SEASON
     Route: 048
     Dates: start: 20090601, end: 20090801
  6. YASMIN [Suspect]
     Indication: CONTRACEPTION
     Dosage: UNK
     Dates: start: 20071219, end: 20100301

REACTIONS (3)
  - CHOLELITHIASIS [None]
  - CHOLECYSTECTOMY [None]
  - PAIN [None]
